FAERS Safety Report 5168347-1 (Version None)
Quarter: 2006Q4

REPORT INFORMATION
  Report Type: 
  Country: None (occurrence: None)
  Receive Date: 20061208
  Receipt Date: 20061127
  Transmission Date: 20070319
  Serious: Yes (Death)
  Sender: FDA-Public Use
  Company Number: JP-ROCHE-472549

PATIENT

DRUGS (4)
  1. HORIZON [Suspect]
     Indication: SEDATION
     Route: 065
  2. PENICILLIN G [Concomitant]
     Indication: TETANUS
  3. ADSORBED TETANUS TOXOID [Concomitant]
     Indication: TETANUS
  4. IMMUNE GLOBULIN (HUMAN) [Concomitant]
     Indication: TETANUS

REACTIONS (4)
  - ARRHYTHMIA [None]
  - CARDIO-RESPIRATORY ARREST [None]
  - PULMONARY EMBOLISM [None]
  - SUDDEN DEATH [None]
